FAERS Safety Report 21224717 (Version 1)
Quarter: 2022Q3

REPORT INFORMATION
  Report Type: Spontaneous
  Country: US (occurrence: US)
  Receive Date: 20220817
  Receipt Date: 20220817
  Transmission Date: 20221027
  Serious: No
  Sender: FDA-Public Use
  Company Number: US-OTSUKA-2022_001911

PATIENT
  Age: 29 Year
  Sex: Male
  Weight: 90.72 kg

DRUGS (1)
  1. ABILIFY MAINTENA [Suspect]
     Active Substance: ARIPIPRAZOLE
     Indication: Schizophrenia
     Dosage: 400 MG
     Route: 065

REACTIONS (2)
  - Product dose omission issue [Unknown]
  - Economic problem [Unknown]

NARRATIVE: CASE EVENT DATE: 20220114
